FAERS Safety Report 19519610 (Version 8)
Quarter: 2025Q1

REPORT INFORMATION
  Report Type: Report from Study
  Country: CA (occurrence: CA)
  Receive Date: 20210712
  Receipt Date: 20250304
  Transmission Date: 20250409
  Serious: Yes (Other)
  Sender: TAKEDA
  Company Number: CA-TAKEDA-2020TUS051946

PATIENT
  Age: 70 Year
  Sex: Female

DRUGS (29)
  1. VEDOLIZUMAB [Suspect]
     Active Substance: VEDOLIZUMAB
     Indication: Crohn^s disease
  2. VEDOLIZUMAB [Suspect]
     Active Substance: VEDOLIZUMAB
  3. VEDOLIZUMAB [Suspect]
     Active Substance: VEDOLIZUMAB
  4. VEDOLIZUMAB [Suspect]
     Active Substance: VEDOLIZUMAB
  5. VEDOLIZUMAB [Suspect]
     Active Substance: VEDOLIZUMAB
  6. VEDOLIZUMAB [Suspect]
     Active Substance: VEDOLIZUMAB
  7. VEDOLIZUMAB [Suspect]
     Active Substance: VEDOLIZUMAB
  8. VEDOLIZUMAB [Suspect]
     Active Substance: VEDOLIZUMAB
  9. VEDOLIZUMAB [Suspect]
     Active Substance: VEDOLIZUMAB
  10. VEDOLIZUMAB [Suspect]
     Active Substance: VEDOLIZUMAB
     Dosage: 300 MILLIGRAM, Q4WEEKS
     Dates: start: 20240725
  11. PANTOPRAZOLE SODIUM [Suspect]
     Active Substance: PANTOPRAZOLE SODIUM
     Indication: Product used for unknown indication
  12. GLUCOPHAGE [Suspect]
     Active Substance: METFORMIN HYDROCHLORIDE
     Indication: Product used for unknown indication
     Dosage: 500 MILLIGRAM, BID
  13. GLUCOPHAGE [Suspect]
     Active Substance: METFORMIN HYDROCHLORIDE
     Dosage: 250 MILLIGRAM, BID
  14. VASCEPA [Suspect]
     Active Substance: ICOSAPENT ETHYL
     Indication: Cerebrovascular accident
  15. DOMPERIDONE [Concomitant]
     Active Substance: DOMPERIDONE
  16. VITAMIN B12 [Concomitant]
     Active Substance: CYANOCOBALAMIN
  17. METFORMIN HYDROCHLORIDE\SAXAGLIPTIN [Concomitant]
     Active Substance: METFORMIN HYDROCHLORIDE\SAXAGLIPTIN
  18. LANTUS [Concomitant]
     Active Substance: INSULIN GLARGINE
  19. Cal D [Concomitant]
  20. FERROUS SULFATE [Concomitant]
     Active Substance: FERROUS SULFATE
  21. BISOPROLOL [Concomitant]
     Active Substance: BISOPROLOL
  22. CLOPIDOGREL [Concomitant]
     Active Substance: CLOPIDOGREL BISULFATE
  23. GLICLAZIDE [Concomitant]
     Active Substance: GLICLAZIDE
  24. NITROFURANTOIN [Concomitant]
     Active Substance: NITROFURANTOIN
  25. VENTOLIN [Concomitant]
     Active Substance: ALBUTEROL SULFATE
  26. NITROGLYCERIN [Concomitant]
     Active Substance: NITROGLYCERIN
  27. OXAZEPAM [Concomitant]
     Active Substance: OXAZEPAM
  28. FLOVENT [Concomitant]
     Active Substance: FLUTICASONE PROPIONATE
  29. METAMUCIL [Concomitant]
     Active Substance: PLANTAGO SEED

REACTIONS (18)
  - Faecaloma [Unknown]
  - Haematochezia [Unknown]
  - Frequent bowel movements [Recovered/Resolved]
  - Faeces soft [Not Recovered/Not Resolved]
  - Dysphonia [Unknown]
  - Sputum discoloured [Recovered/Resolved]
  - Off label use [Unknown]
  - Mobility decreased [Not Recovered/Not Resolved]
  - Balance disorder [Not Recovered/Not Resolved]
  - Hot flush [Unknown]
  - Constipation [Unknown]
  - Arthralgia [Not Recovered/Not Resolved]
  - Cough [Recovered/Resolved]
  - Nausea [Not Recovered/Not Resolved]
  - Fatigue [Not Recovered/Not Resolved]
  - Diarrhoea [Recovered/Resolved]
  - Anal incontinence [Unknown]
  - COVID-19 [Unknown]

NARRATIVE: CASE EVENT DATE: 20201216
